FAERS Safety Report 11893293 (Version 3)
Quarter: 2016Q2

REPORT INFORMATION
  Report Type: Report from Study
  Country: US (occurrence: US)
  Receive Date: 20160106
  Receipt Date: 20160512
  Transmission Date: 20160815
  Serious: Yes (Hospitalization)
  Sender: FDA-Public Use
  Company Number: US-BIOGEN-2015BI050451

PATIENT
  Age: 68 Year
  Sex: Female

DRUGS (3)
  1. PLEGRIDY [Interacting]
     Active Substance: PEGINTERFERON BETA-1A
     Route: 065
     Dates: start: 20150310
  2. PLEGRIDY [Interacting]
     Active Substance: PEGINTERFERON BETA-1A
     Route: 058
     Dates: end: 20150731
  3. PLEGRIDY [Suspect]
     Active Substance: PEGINTERFERON BETA-1A
     Indication: MULTIPLE SCLEROSIS
     Route: 058
     Dates: start: 20150222

REACTIONS (29)
  - Motor dysfunction [Recovered/Resolved]
  - Hair texture abnormal [Unknown]
  - Communication disorder [Unknown]
  - Renal disorder [Unknown]
  - Asthenia [Recovered/Resolved]
  - Loss of control of legs [Unknown]
  - Influenza [Recovered/Resolved]
  - Device loosening [Recovered/Resolved]
  - Adverse reaction [Recovered/Resolved]
  - Balance disorder [Recovered/Resolved]
  - Limb discomfort [Unknown]
  - Alopecia [Unknown]
  - Dyskinesia [Not Recovered/Not Resolved]
  - Thyroid hormones increased [Recovered/Resolved]
  - Blood potassium abnormal [Unknown]
  - Stress fracture [Unknown]
  - White blood cell count decreased [Recovered/Resolved]
  - Fall [Recovered/Resolved]
  - Insomnia [Unknown]
  - Tremor [Recovered/Resolved]
  - Dysstasia [Recovered/Resolved]
  - Muscular weakness [Recovered/Resolved]
  - Multiple sclerosis relapse [Recovered/Resolved]
  - Chills [Unknown]
  - Head injury [Recovered/Resolved]
  - Cognitive disorder [Recovered/Resolved]
  - Abdominal discomfort [Unknown]
  - Intervertebral disc protrusion [Not Recovered/Not Resolved]
  - Nausea [Recovered/Resolved]

NARRATIVE: CASE EVENT DATE: 2015
